FAERS Safety Report 14228897 (Version 1)
Quarter: 2017Q4

REPORT INFORMATION
  Report Type: Report from Study
  Country: US (occurrence: US)
  Receive Date: 20171128
  Receipt Date: 20171128
  Transmission Date: 20180321
  Serious: Yes (Hospitalization)
  Sender: FDA-Public Use
  Company Number: US-ROCHE-1611953

PATIENT
  Age: 57 Year
  Sex: Male

DRUGS (6)
  1. PERCOCET [Concomitant]
     Active Substance: ACETAMINOPHEN\OXYCODONE HYDROCHLORIDE
  2. ESBRIET [Suspect]
     Active Substance: PIRFENIDONE
     Indication: PULMONARY FIBROSIS
     Dosage: 3 PILLS 3 TIMES A DAY, NINE PILLS A DAY
     Route: 048
     Dates: start: 20160301
  3. XARELTO [Concomitant]
     Active Substance: RIVAROXABAN
     Route: 065
  4. METFORMIN [Concomitant]
     Active Substance: METFORMIN HYDROCHLORIDE
  5. LEVEMIR [Concomitant]
     Active Substance: INSULIN DETEMIR
  6. LOSARTIN [Concomitant]
     Active Substance: LOSARTAN

REACTIONS (2)
  - Pulmonary embolism [Recovered/Resolved]
  - Deep vein thrombosis [Unknown]

NARRATIVE: CASE EVENT DATE: 20170704
